FAERS Safety Report 7083922-5 (Version None)
Quarter: 2010Q4

REPORT INFORMATION
  Report Type: 
  Country: None (occurrence: None)
  Receive Date: 20101104
  Receipt Date: 20091222
  Transmission Date: 20110411
  Serious: No
  Sender: FDA-Public Use
  Company Number: US-ABBOTT-09P-163-0616695-00

PATIENT
  Sex: Male
  Weight: 71.732 kg

DRUGS (5)
  1. KALETRA [Suspect]
     Indication: HIV TEST POSITIVE
     Dosage: TWICE DAILY
  2. ISENTRESS [Concomitant]
     Indication: PRODUCT USED FOR UNKNOWN INDICATION
  3. INVIRASE [Concomitant]
     Indication: PRODUCT USED FOR UNKNOWN INDICATION
  4. EPIVIR [Concomitant]
     Indication: PRODUCT USED FOR UNKNOWN INDICATION
  5. VIREAD [Concomitant]
     Indication: PRODUCT USED FOR UNKNOWN INDICATION

REACTIONS (3)
  - BLOOD GLUCOSE INCREASED [None]
  - ERECTILE DYSFUNCTION [None]
  - SEMEN DISCOLOURATION [None]
